FAERS Safety Report 21404863 (Version 3)
Quarter: 2022Q4

REPORT INFORMATION
  Report Type: Report from Study
  Country: US (occurrence: US)
  Receive Date: 20221003
  Receipt Date: 20221125
  Transmission Date: 20230112
  Serious: No
  Sender: FDA-Public Use
  Company Number: US-ABBVIE-22K-163-4365699-00

PATIENT
  Sex: Female

DRUGS (7)
  1. HUMIRA [Suspect]
     Active Substance: ADALIMUMAB
     Indication: Rheumatoid arthritis
     Dosage: CF
     Route: 058
  2. HUMIRA [Suspect]
     Active Substance: ADALIMUMAB
     Indication: Ankylosing spondylitis
     Dosage: CF
     Route: 058
  3. HUMIRA [Suspect]
     Active Substance: ADALIMUMAB
     Dosage: CITRATE FREE
     Route: 058
  4. HUMIRA [Suspect]
     Active Substance: ADALIMUMAB
     Dosage: CF
     Route: 058
  5. PFIZER-BIONTECH COVID-19 VACCINE [Concomitant]
     Active Substance: TOZINAMERAN
     Indication: COVID-19 immunisation
     Dosage: TIME INTERVAL: 1 TOTAL: FIRST DOSE
     Route: 030
     Dates: start: 20210517, end: 20210517
  6. PFIZER-BIONTECH COVID-19 VACCINE [Concomitant]
     Active Substance: TOZINAMERAN
     Indication: COVID-19 immunisation
     Dosage: TIME INTERVAL: 1 TOTAL: SECOND DOSE
     Route: 030
     Dates: start: 20210714, end: 20210714
  7. PFIZER-BIONTECH COVID-19 VACCINE [Concomitant]
     Active Substance: TOZINAMERAN
     Indication: COVID-19 immunisation
     Dosage: TIME INTERVAL: 1 TOTAL: BOOSTER DOSE
     Route: 030
     Dates: start: 20220215, end: 20221102

REACTIONS (14)
  - Swelling [Not Recovered/Not Resolved]
  - Joint range of motion decreased [Unknown]
  - Liver function test increased [Unknown]
  - Pain [Not Recovered/Not Resolved]
  - Hypoaesthesia [Unknown]
  - Musculoskeletal stiffness [Unknown]
  - Cough [Recovering/Resolving]
  - Ankle fracture [Unknown]
  - Rash [Recovering/Resolving]
  - Arthralgia [Not Recovered/Not Resolved]
  - Back pain [Recovering/Resolving]
  - Oropharyngeal pain [Recovering/Resolving]
  - Hypersensitivity [Unknown]
  - Pain in extremity [Not Recovered/Not Resolved]

NARRATIVE: CASE EVENT DATE: 20220101
